FAERS Safety Report 19587752 (Version 1)
Quarter: 2021Q3

REPORT INFORMATION
  Report Type: Spontaneous
  Country: GB (occurrence: GB)
  Receive Date: 20210721
  Receipt Date: 20210721
  Transmission Date: 20211014
  Serious: Yes (Other)
  Sender: FDA-Public Use
  Company Number: GB-ALKEM LABORATORIES LIMITED-GB-ALKEM-2021-01919

PATIENT

DRUGS (4)
  1. SULFAMETHOXAZOLE/TRIMETHOPRIM [Concomitant]
     Active Substance: SULFAMETHOXAZOLE\TRIMETHOPRIM
     Indication: PROPHYLAXIS
     Dosage: UNK
     Route: 065
  2. PREDNISOLONE. [Suspect]
     Active Substance: PREDNISOLONE
     Indication: PRODUCT USED FOR UNKNOWN INDICATION
     Dosage: 1 MILLIGRAM/KILOGRAM, QD
     Route: 065
  3. MYCOPHENOLATE MOFETIL. [Suspect]
     Active Substance: MYCOPHENOLATE MOFETIL
     Indication: POLYARTERITIS NODOSA
     Dosage: 600 MILLIGRAM/SQ. METER, QD
     Route: 048
  4. AZATHIOPRINE. [Suspect]
     Active Substance: AZATHIOPRINE
     Indication: POLYARTERITIS NODOSA
     Dosage: 2 MILLIGRAM/KILOGRAM, QD
     Route: 048

REACTIONS (1)
  - Herpes zoster [Recovered/Resolved]
